FAERS Safety Report 4519806-3 (Version None)
Quarter: 2004Q4

REPORT INFORMATION
  Report Type: 
  Country: None (occurrence: None)
  Receive Date: 20041202
  Receipt Date: 20041202
  Transmission Date: 20050328
  Serious: Yes (Death)
  Sender: FDA-Public Use
  Company Number: None

PATIENT
  Sex: Male
  Weight: 76 kg

DRUGS (10)
  1. IRESSA [Suspect]
     Indication: COLON CANCER
     Dosage: 250  MG/DAY
  2. IRINOTECAN HCL [Suspect]
     Dosage: CPT-11 WEEKS 1,2,4, + 5
  3. OXYCONTIN [Concomitant]
  4. OXYCODONE HCL [Concomitant]
  5. NAPROSYN [Concomitant]
  6. ZOLOFT [Concomitant]
  7. STOOL SOFTENER [Concomitant]
  8. HALDOL [Concomitant]
  9. AMBIEN [Concomitant]
  10. OXACILLIN [Concomitant]

REACTIONS (2)
  - CONDITION AGGRAVATED [None]
  - MALAISE [None]
